FAERS Safety Report 9346598 (Version 1)
Quarter: 2013Q2

REPORT INFORMATION
  Report Type: Spontaneous
  Country: US (occurrence: US)
  Receive Date: 20130613
  Receipt Date: 20130613
  Transmission Date: 20140414
  Serious: Yes (Hospitalization)
  Sender: FDA-Public Use
  Company Number: US-BAYER-2013-071391

PATIENT
  Age: 18 Year
  Sex: Female
  Weight: 70.66 kg

DRUGS (3)
  1. YAZ [Suspect]
     Indication: MENSTRUATION IRREGULAR
  2. TYLENOL [Concomitant]
  3. NORCO [Concomitant]

REACTIONS (1)
  - Pulmonary embolism [Recovered/Resolved]
